FAERS Safety Report 7064983-6 (Version None)
Quarter: 2010Q4

REPORT INFORMATION
  Report Type: 
  Country: None (occurrence: None)
  Receive Date: 20101027
  Receipt Date: 19921218
  Transmission Date: 20110411
  Serious: Yes (Death, Life-Threatening, Hospitalization, Disabling)
  Sender: FDA-Public Use
  Company Number: DE-ROCHE-920318678001

PATIENT
  Sex: Male
  Weight: 72 kg

DRUGS (8)
  1. CILAZAPRIL [Suspect]
     Indication: HYPERTENSION
     Route: 048
     Dates: start: 19920703
  2. NOVODIGAL [Suspect]
     Route: 048
  3. CAPTOPRIL [Concomitant]
     Route: 048
  4. ISOSORBIDE DINITRATE [Concomitant]
     Route: 048
  5. ACETYLSALICYLIC ACID [Concomitant]
     Route: 048
  6. FURORESE [Concomitant]
     Route: 048
  7. ZYLORIC [Concomitant]
     Route: 048
  8. GELUSIL [Concomitant]
     Route: 065

REACTIONS (3)
  - ARTERIAL OCCLUSIVE DISEASE [None]
  - DEATH [None]
  - VENOUS THROMBOSIS [None]
